FAERS Safety Report 6696753-2 (Version None)
Quarter: 2010Q2

REPORT INFORMATION
  Report Type: 
  Country: None (occurrence: None)
  Receive Date: 20100426
  Receipt Date: 20100412
  Transmission Date: 20101027
  Serious: Yes (Hospitalization)
  Sender: FDA-Public Use
  Company Number: JP-ELI_LILLY_AND_COMPANY-JP201004005080

PATIENT
  Age: 55 Year
  Sex: Male
  Weight: 78 kg

DRUGS (22)
  1. PEMETREXED [Suspect]
     Indication: LUNG ADENOCARCINOMA STAGE IV
     Dosage: 500 MG/M2, OTHER
     Route: 042
     Dates: start: 20090811
  2. PEMETREXED [Suspect]
     Dosage: 500 MG/M2, OTHER
     Route: 042
     Dates: start: 20090901
  3. PANVITAN [Concomitant]
     Dosage: 0.5 MG, DAILY (1/D)
     Route: 048
     Dates: start: 20090729, end: 20090921
  4. HYDROXOCOBALAMIN ACETATE [Concomitant]
     Dosage: 1 MG, UNKNOWN
     Route: 030
     Dates: start: 20090729
  5. DEXART [Concomitant]
     Dosage: UNK, UNKNOWN
     Route: 042
     Dates: start: 20090811
  6. DEXART [Concomitant]
     Dosage: UNK, UNKNOWN
     Route: 042
     Dates: start: 20090901
  7. LENDORMIN [Concomitant]
     Indication: INSOMNIA
     Dosage: UNK, UNKNOWN
     Route: 048
  8. SILECE [Concomitant]
     Indication: INSOMNIA
     Dosage: UNK, UNKNOWN
     Route: 065
  9. GOSHAJINKIGAN [Concomitant]
     Indication: HYPOAESTHESIA
     Dosage: UNK, UNKNOWN
     Route: 048
  10. SHAKUYAKUKANZOUTOU [Concomitant]
     Indication: HYPOAESTHESIA
     Dosage: UNK, UNKNOWN
     Route: 048
  11. GASTER D /JPN/ [Concomitant]
     Indication: ABDOMINAL DISCOMFORT
     Dosage: UNK, UNKNOWN
     Route: 065
     Dates: start: 20090814, end: 20090906
  12. ALLOID G [Concomitant]
     Indication: RADIATION INJURY
     Dosage: UNK, UNKNOWN
     Route: 065
     Dates: start: 20090825, end: 20090923
  13. TAKEPRON [Concomitant]
     Indication: ABDOMINAL DISCOMFORT
     Dosage: UNK, UNKNOWN
     Route: 065
     Dates: start: 20090907
  14. ADALAT [Concomitant]
     Dosage: UNK, UNKNOWN
     Route: 048
  15. LIVALO [Concomitant]
     Dosage: UNK, UNKNOWN
     Route: 048
  16. CALBLOCK [Concomitant]
     Dosage: UNK, UNKNOWN
     Route: 048
  17. TANATRIL /JPN/ [Concomitant]
     Dosage: UNK, UNKNOWN
     Route: 048
  18. KAMISHOUYOUSAN [Concomitant]
     Dosage: UNK, UNKNOWN
     Route: 065
     Dates: start: 20090909
  19. CEFDINIR [Concomitant]
     Dosage: UNK, UNKNOWN
     Route: 048
     Dates: start: 20090916, end: 20090919
  20. GARENOXACIN [Concomitant]
     Indication: UPPER RESPIRATORY TRACT INFLAMMATION
     Dosage: UNK, UNKNOWN
     Route: 065
     Dates: start: 20090917, end: 20090920
  21. PL GRAN. [Concomitant]
     Indication: UPPER RESPIRATORY TRACT INFLAMMATION
     Dosage: UNK, UNKNOWN
     Route: 048
     Dates: start: 20090917, end: 20090920
  22. LOXONIN [Concomitant]
     Indication: UPPER RESPIRATORY TRACT INFLAMMATION
     Dosage: UNK, UNKNOWN
     Route: 048
     Dates: start: 20090916, end: 20090920

REACTIONS (2)
  - DIVERTICULITIS [None]
  - RETROPERITONEAL ABSCESS [None]
